FAERS Safety Report 11304085 (Version 1)
Quarter: 2015Q3

REPORT INFORMATION
  Report Type: Spontaneous
  Country: US (occurrence: US)
  Receive Date: 20150723
  Receipt Date: 20150723
  Transmission Date: 20151125
  Serious: No
  Sender: FDA-Public Use
  Company Number: US-JNJFOC-20150620734

PATIENT
  Sex: Female

DRUGS (2)
  1. PEPCID [Suspect]
     Active Substance: FAMOTIDINE
     Indication: GASTROOESOPHAGEAL REFLUX DISEASE
     Route: 048
  2. PEPCID [Suspect]
     Active Substance: FAMOTIDINE
     Route: 048

REACTIONS (1)
  - Incorrect drug administration duration [Unknown]
